FAERS Safety Report 6793149-X (Version None)
Quarter: 2010Q2

REPORT INFORMATION
  Report Type: 
  Country: None (occurrence: None)
  Receive Date: 20100624
  Receipt Date: 20090622
  Transmission Date: 20101027
  Serious: Yes (Death, Other)
  Sender: FDA-Public Use
  Company Number: US-MYLANLABS-2009S1010210

PATIENT
  Age: 43 Year
  Sex: Female

DRUGS (4)
  1. CLOZAPINE [Suspect]
     Indication: SCHIZOPHRENIA
     Route: 048
     Dates: start: 20060901, end: 20090501
  2. KLONOPIN [Concomitant]
     Route: 048
  3. PREVACID [Concomitant]
     Route: 048
  4. NICOTROL [Concomitant]
     Route: 045

REACTIONS (1)
  - DEATH [None]
